FAERS Safety Report 6246461-7 (Version None)
Quarter: 2009Q2

REPORT INFORMATION
  Report Type: 
  Country: None (occurrence: None)
  Receive Date: 20090626
  Receipt Date: 20090617
  Transmission Date: 20091009
  Serious: Yes (Hospitalization, Other)
  Sender: FDA-Public Use
  Company Number: BR-ROCHE-612959

PATIENT
  Sex: Male
  Weight: 80 kg

DRUGS (7)
  1. PEG-INTERFERON ALFA 2A (RO 25-8310) [Suspect]
     Indication: HEPATITIS C
     Route: 058
     Dates: start: 20071129, end: 20080201
  2. PEG-INTERFERON ALFA 2A (RO 25-8310) [Suspect]
     Dosage: DOSAGE LOWERED
     Route: 058
     Dates: start: 20080201, end: 20081123
  3. PEG-INTERFERON ALFA 2A (RO 25-8310) [Suspect]
     Route: 058
     Dates: end: 20090101
  4. RIBAVIRIN (NON-ROCHE) [Suspect]
     Indication: HEPATITIS C
     Route: 048
     Dates: start: 20071101
  5. CLONAZEPAM [Suspect]
     Indication: INSOMNIA
     Dosage: OTHER INDICATION:CONVULSIONS
     Route: 048
     Dates: start: 19990101
  6. CLONAZEPAM [Suspect]
     Dosage: DOSAGE LOWERED
     Route: 048
  7. SULFAMETHOXAZOLE AND TRIMETHOPRIM [Suspect]
     Indication: DRUG USE FOR UNKNOWN INDICATION
     Route: 065

REACTIONS (14)
  - ASPARTATE AMINOTRANSFERASE INCREASED [None]
  - CALCINOSIS [None]
  - CONVULSION [None]
  - DEPENDENCE [None]
  - DIZZINESS [None]
  - DRUG TOXICITY [None]
  - HEPATITIS C [None]
  - IMMUNODEFICIENCY [None]
  - LEUKOPENIA [None]
  - PNEUMONIA [None]
  - SKIN EROSION [None]
  - TACHYCARDIA [None]
  - THROMBOCYTOPENIA [None]
  - WEIGHT DECREASED [None]
